FAERS Safety Report 5290490-7 (Version None)
Quarter: 2007Q2

REPORT INFORMATION
  Report Type: 
  Country: None (occurrence: None)
  Receive Date: 20070405
  Receipt Date: 20070405
  Transmission Date: 20071010
  Serious: Yes (Hospitalization)
  Sender: FDA-Public Use
  Company Number: None

PATIENT

DRUGS (8)
  1. GLEEVEC [Suspect]
     Indication: GLIOMA
     Dosage: 600 MG/QD
     Dates: start: 20061213, end: 20070307
  2. HYDROXYUREA [Suspect]
     Dosage: 2.5 MG/QOD
     Dates: start: 20061213, end: 20070307
  3. RAD001 [Suspect]
     Dosage: 2.5 MG/QOD
     Dates: start: 20061213, end: 20070307
  4. KEPPRA [Concomitant]
  5. LEXAPRO [Concomitant]
  6. PROTONIX [Concomitant]
  7. DECADRON [Concomitant]
  8. DILANTIN [Concomitant]

REACTIONS (6)
  - BREATH SOUNDS ABNORMAL [None]
  - CHEST PAIN [None]
  - CREPITATIONS [None]
  - DYSPNOEA EXERTIONAL [None]
  - PULMONARY EMBOLISM [None]
  - TENDERNESS [None]
